FAERS Safety Report 7330071-4 (Version None)
Quarter: 2011Q1

REPORT INFORMATION
  Report Type: 
  Country: None (occurrence: None)
  Receive Date: 20110303
  Receipt Date: 20101123
  Transmission Date: 20110831
  Serious: Yes (Hospitalization, Other)
  Sender: FDA-Public Use
  Company Number: US-BAYER-201038104NA

PATIENT
  Sex: Female
  Weight: 118 kg

DRUGS (16)
  1. OCELLA [Suspect]
     Indication: MENORRHAGIA
  2. YAZ [Suspect]
     Indication: ACNE
     Dosage: 1 TAB/DAY
     Dates: start: 20080708, end: 20100101
  3. YASMIN [Suspect]
     Indication: ACNE
     Dosage: DAILY DOSE 3 DF
     Route: 048
  4. YASMIN [Suspect]
     Indication: MENORRHAGIA
     Dosage: 2 DF, UNK
     Route: 048
  5. ZOFRAN [Concomitant]
     Indication: NAUSEA
     Dosage: UNK
     Dates: start: 20080101
  6. AMOXIL [Concomitant]
     Indication: EAR INFECTION
     Dosage: 50 MG, BID
     Dates: start: 20080101
  7. TYLENOL W/ CODEINE NO. 3 [Concomitant]
     Indication: PHARYNGITIS
     Dosage: UNK UNK, PRN
     Dates: start: 20080101
  8. MOTRIN [Concomitant]
     Indication: PHARYNGITIS
  9. TYLENOL W/ CODEINE NO. 3 [Concomitant]
     Indication: EAR INFECTION
  10. AMOXIL [Concomitant]
     Indication: PHARYNGITIS
  11. OCELLA [Suspect]
     Indication: ACNE
     Dosage: UNK
  12. MULTI-VITAMINS [Concomitant]
     Dosage: UNK
     Dates: start: 20080101
  13. YAZ [Suspect]
     Indication: MENORRHAGIA
  14. AUGMENTIN '125' [Concomitant]
     Indication: ACUTE SINUSITIS
     Dosage: 875 MG (1 TABLET), PRN
     Route: 048
     Dates: start: 20081001
  15. YASMIN [Suspect]
     Dosage: 1 DF, QD
  16. MOTRIN [Concomitant]
     Indication: EAR INFECTION
     Dosage: UNK, AS NEEDED

REACTIONS (6)
  - CHOLELITHIASIS [None]
  - HEPATIC ENZYME INCREASED [None]
  - INJURY [None]
  - JAUNDICE [None]
  - NAUSEA [None]
  - ABDOMINAL PAIN [None]
